FAERS Safety Report 11086951 (Version 1)
Quarter: 2015Q2

REPORT INFORMATION
  Report Type: Spontaneous
  Country: US (occurrence: None)
  Receive Date: 20150501
  Receipt Date: 20150501
  Transmission Date: 20150821
  Serious: Yes (Disabling)
  Sender: FDA-Public Use
  Company Number: None

PATIENT
  Age: 71 Year
  Sex: Female
  Weight: 65.77 kg

DRUGS (17)
  1. GABAPENTIN. [Concomitant]
     Active Substance: GABAPENTIN
  2. VITAMIN C [Concomitant]
     Active Substance: ASCORBIC ACID
  3. CURCUMEN [Concomitant]
  4. CALCIUM [Concomitant]
     Active Substance: CALCIUM
  5. CHLORELLA [Concomitant]
  6. VALTREX [Concomitant]
     Active Substance: VALACYCLOVIR HYDROCHLORIDE
  7. D3 [Concomitant]
     Active Substance: 25-HYDROXYCHOLECALCIFEROL, 5-TRANS-
  8. AMITTIPTYLINE HCI [Concomitant]
  9. METHAMAZOLE [Concomitant]
  10. WOMEN^S FORMULA MULTI VITAMIN [Concomitant]
  11. GRAPE SEED [Concomitant]
  12. ATENOL [Concomitant]
     Active Substance: ATENOLOL
  13. BIOTIN [Concomitant]
     Active Substance: BIOTIN
  14. SILLYMARIN [Concomitant]
  15. PROBIOTIC [Suspect]
     Active Substance: PROBIOTICS NOS
  16. FISH OIL [Concomitant]
     Active Substance: FISH OIL
  17. QUETENZA [Suspect]
     Active Substance: CAPSAICIN
     Indication: POST HERPETIC NEURALGIA
     Dates: start: 20150323, end: 20150323

REACTIONS (7)
  - Back pain [None]
  - Activities of daily living impaired [None]
  - Pain in extremity [None]
  - Monoplegia [None]
  - Impaired work ability [None]
  - Paralysis [None]
  - Spinal disorder [None]

NARRATIVE: CASE EVENT DATE: 20150323
